FAERS Safety Report 16201868 (Version 1)
Quarter: 2019Q2

REPORT INFORMATION
  Report Type: Report from Study
  Country: PT (occurrence: PT)
  Receive Date: 20190416
  Receipt Date: 20190416
  Transmission Date: 20190711
  Serious: Yes (Other)
  Sender: FDA-Public Use
  Company Number: PT-AUROBINDO-AUR-APL-2019-021671

PATIENT

DRUGS (3)
  1. TENOFOVIR FILM COATED TABLETS [Suspect]
     Active Substance: TENOFOVIR
     Indication: HIV TEST POSITIVE
     Dosage: UNK
     Route: 065
  2. EMTRICITABINE [Suspect]
     Active Substance: EMTRICITABINE
     Indication: HIV TEST POSITIVE
     Dosage: UNK
     Route: 065
  3. NEVIRAPINE. [Suspect]
     Active Substance: NEVIRAPINE
     Indication: HIV TEST POSITIVE
     Dosage: UNK
     Route: 065

REACTIONS (1)
  - Hereditary optic atrophy [Unknown]
